FAERS Safety Report 8559817-4 (Version None)
Quarter: 2012Q3

REPORT INFORMATION
  Report Type: 
  Country: None (occurrence: None)
  Receive Date: 20120802
  Receipt Date: 20120727
  Transmission Date: 20120928
  Serious: Yes (Hospitalization, Other)
  Sender: FDA-Public Use
  Company Number: US-PFIZER INC-2011145159

PATIENT
  Sex: Female

DRUGS (26)
  1. XANAX [Concomitant]
     Indication: ANXIETY
     Dosage: UNK
     Dates: start: 20050101, end: 20100101
  2. LORCET-HD [Concomitant]
     Indication: PAIN
     Dosage: UNK
     Dates: start: 20010101, end: 20110101
  3. ATIVAN [Concomitant]
     Indication: ANXIETY
     Dosage: UNK
     Dates: start: 20010101
  4. LEXAPRO [Concomitant]
     Indication: DEPRESSION
     Dosage: UNK
     Dates: start: 20040101, end: 20080101
  5. PREDNISONE [Concomitant]
     Dosage: UNK
     Dates: start: 20030101, end: 20090101
  6. ADVAIR DISKUS 100/50 [Concomitant]
     Indication: CHRONIC OBSTRUCTIVE PULMONARY DISEASE
     Dosage: UNK
     Dates: start: 20020101, end: 20080101
  7. CHANTIX [Suspect]
     Indication: SMOKING CESSATION THERAPY
     Dosage: STARTING MONTH PACK AND CONTINUING MONTH PACKS
     Dates: start: 20070301, end: 20070901
  8. LORTAB [Concomitant]
     Indication: PAIN
     Dosage: UNK
     Dates: start: 20010101, end: 20110101
  9. PROMETHAZINE W/ CODEINE [Concomitant]
     Indication: COUGH
     Dosage: UNK
     Dates: start: 20030101, end: 20090101
  10. DARVOCET [Concomitant]
     Indication: PAIN
     Dosage: UNK
     Dates: start: 20040101, end: 20100101
  11. CEPHALEXIN [Concomitant]
     Indication: INFECTION
     Dosage: UNK
     Dates: start: 20050101, end: 20090101
  12. PREVACID [Concomitant]
     Indication: GASTROOESOPHAGEAL REFLUX DISEASE
     Dosage: UNK
     Dates: start: 20020101, end: 20080101
  13. ZESTRIL [Concomitant]
     Indication: HYPERTENSION
     Dosage: UNK
     Dates: start: 20010101
  14. LASIX [Concomitant]
     Indication: HYPERTENSION
     Dosage: UNK
     Dates: start: 20010101
  15. ALBUTEROL [Concomitant]
     Indication: CHRONIC OBSTRUCTIVE PULMONARY DISEASE
     Dosage: UNK
     Dates: start: 20020101, end: 20080101
  16. PRILOSEC [Concomitant]
     Indication: GASTROOESOPHAGEAL REFLUX DISEASE
     Dosage: UNK
     Dates: start: 20040101
  17. GLUCOPHAGE [Concomitant]
     Indication: DIABETES MELLITUS
     Dosage: UNK
     Dates: start: 20060101
  18. DICLOFENAC [Concomitant]
     Indication: PAIN
     Dosage: UNK
     Dates: start: 20030101, end: 20080101
  19. LOPRESSOR [Concomitant]
     Indication: HYPERTENSION
     Dosage: UNK
     Dates: start: 20010101
  20. CELEXA [Concomitant]
     Indication: DEPRESSION
     Dosage: UNK
     Dates: start: 20020101
  21. ZITHROMAX [Concomitant]
     Indication: INFECTION
     Dosage: UNK
     Dates: start: 20030101, end: 20090101
  22. PRILOSEC [Concomitant]
     Indication: HIATUS HERNIA
  23. PERCOCET [Concomitant]
     Indication: PAIN
     Dosage: UNK
     Dates: start: 20060101, end: 20110101
  24. PREVACID [Concomitant]
     Indication: HIATUS HERNIA
  25. ACETYLSALICYLIC ACID [Concomitant]
     Indication: ANTICOAGULANT THERAPY
     Dosage: UNK
     Dates: start: 20010101
  26. REQUIP [Concomitant]
     Indication: RESTLESS LEGS SYNDROME
     Dosage: UNK
     Dates: start: 20050101

REACTIONS (2)
  - ANXIETY [None]
  - DEPRESSION [None]
